FAERS Safety Report 21619433 (Version 1)
Quarter: 2022Q4

REPORT INFORMATION
  Report Type: Spontaneous
  Country: DE (occurrence: DE)
  Receive Date: 20221121
  Receipt Date: 20221121
  Transmission Date: 20230113
  Serious: Yes (Other)
  Sender: FDA-Public Use
  Company Number: DE-UCBSA-2022064174

PATIENT
  Age: 30 Year
  Sex: Male

DRUGS (2)
  1. LEVETIRACETAM [Suspect]
     Active Substance: LEVETIRACETAM
     Indication: Partial seizures
     Dosage: 1000 MG
     Route: 065
     Dates: start: 2012
  2. VALPROATE [Concomitant]
     Active Substance: VALPROIC ACID
     Indication: Partial seizures
     Dosage: UNK
     Route: 065

REACTIONS (6)
  - Change in seizure presentation [Unknown]
  - Seizure [Unknown]
  - Erythema [Unknown]
  - Dystonic tremor [Unknown]
  - Hyperhidrosis [Unknown]
  - Drug ineffective [Unknown]
